FAERS Safety Report 7776276-X (Version None)
Quarter: 2011Q3

REPORT INFORMATION
  Report Type: 
  Country: None (occurrence: None)
  Receive Date: 20110926
  Receipt Date: 20110914
  Transmission Date: 20111222
  Serious: No
  Sender: FDA-Public Use
  Company Number: US-JNJFOC-20110510332

PATIENT
  Sex: Male
  Weight: 113.4 kg

DRUGS (15)
  1. FENTANYL-100 [Suspect]
     Route: 062
     Dates: end: 20090101
  2. FENTANYL-100 [Suspect]
     Route: 062
     Dates: end: 20090101
  3. ATENOLOL [Concomitant]
     Indication: BLOOD PRESSURE
     Route: 048
  4. POTASSIUM [Concomitant]
     Route: 048
  5. FENTANYL-100 [Suspect]
     Indication: PAIN IN EXTREMITY
     Route: 062
     Dates: start: 20090101, end: 20110615
  6. LODINE [Concomitant]
     Indication: ANTIINFLAMMATORY THERAPY
     Route: 048
  7. TRIAMTERENE [Concomitant]
     Indication: DIURETIC THERAPY
     Route: 048
     Dates: start: 20040101
  8. FENTANYL-100 [Suspect]
     Indication: RADICULAR PAIN
     Route: 062
     Dates: start: 20090101, end: 20110615
  9. ENALAPRIL MALEATE [Concomitant]
     Indication: BLOOD PRESSURE
     Route: 048
  10. ETODOLAC [Concomitant]
     Indication: ANTIINFLAMMATORY THERAPY
     Route: 048
  11. BACLOFEN [Concomitant]
     Indication: MUSCLE RELAXANT THERAPY
     Route: 048
  12. TIZANIDINE HCL [Concomitant]
     Indication: MUSCLE RELAXANT THERAPY
     Route: 048
  13. CHLORTHALIDONE [Concomitant]
     Indication: DIURETIC THERAPY
     Route: 048
  14. PARAFON FORTE [Concomitant]
     Indication: MUSCLE RELAXANT THERAPY
     Route: 048
  15. KLOR-CON [Concomitant]
     Indication: MINERAL SUPPLEMENTATION
     Route: 048

REACTIONS (10)
  - THERAPEUTIC RESPONSE DECREASED [None]
  - PAIN [None]
  - FATIGUE [None]
  - POOR QUALITY DRUG ADMINISTERED [None]
  - INSOMNIA [None]
  - LACRIMATION INCREASED [None]
  - AGITATION [None]
  - EXPIRED DRUG ADMINISTERED [None]
  - WRONG TECHNIQUE IN DRUG USAGE PROCESS [None]
  - SOMNOLENCE [None]
